FAERS Safety Report 6371224-1 (Version None)
Quarter: 2009Q3

REPORT INFORMATION
  Report Type: 
  Country: None (occurrence: None)
  Receive Date: 20090923
  Receipt Date: 20070905
  Transmission Date: 20100115
  Serious: Yes (Other)
  Sender: FDA-Public Use
  Company Number: US-ASTRAZENECA-2006UW27526

PATIENT
  Age: 40 Year
  Sex: Female
  Weight: 59 kg

DRUGS (11)
  1. SEROQUEL [Suspect]
     Indication: EMOTIONAL DISORDER
     Route: 048
     Dates: start: 20030827
  2. SEROQUEL [Suspect]
     Indication: AFFECTIVE DISORDER
     Route: 048
     Dates: start: 20030827
  3. SEROQUEL [Suspect]
     Indication: INSOMNIA
     Route: 048
     Dates: start: 20030827
  4. LEXAPRO [Concomitant]
     Dates: start: 20030101
  5. DEPAKOTE [Concomitant]
     Route: 048
  6. PREVACID [Concomitant]
     Route: 048
  7. CAMPRAL [Concomitant]
     Route: 048
  8. PROTONIX [Concomitant]
     Route: 048
  9. LIPITOR [Concomitant]
     Route: 048
  10. LITHIUM CARBONATE [Concomitant]
     Route: 048
  11. ZONEGRAN [Concomitant]

REACTIONS (1)
  - PANCREATITIS [None]
